FAERS Safety Report 9424702 (Version 2)
Quarter: 2013Q3

REPORT INFORMATION
  Report Type: Spontaneous
  Country: US (occurrence: None)
  Receive Date: 20130725
  Receipt Date: 20130816
  Transmission Date: 20140515
  Serious: Yes (Other)
  Sender: FDA-Public Use
  Company Number: JPI-P-033805

PATIENT
  Age: 27 Year
  Sex: Male
  Weight: 92.99 kg

DRUGS (1)
  1. XYREM [Suspect]
     Indication: HYPERSOMNIA
     Dosage: 4.5GM (2.25GM, 2 IN 1 D) ORAL
     Route: 048
     Dates: start: 20051004

REACTIONS (1)
  - Squamous cell carcinoma of the tongue [None]
